FAERS Safety Report 5271331-0 (Version None)
Quarter: 2007Q1

REPORT INFORMATION
  Report Type: 
  Country: None (occurrence: None)
  Receive Date: 20061214
  Receipt Date: 20051019
  Transmission Date: 20070707
  Serious: Yes (Life-Threatening, Other)
  Sender: FDA-Public Use
  Company Number: 2005143762

PATIENT
  Age: 48 Year
  Sex: Male
  Weight: 77.1115 kg

DRUGS (4)
  1. BEXTRA [Suspect]
     Indication: PAIN IN EXTREMITY
     Dosage: 20 MG (20 MG, 1 N 1 D), ORAL
     Route: 048
     Dates: start: 20051001, end: 20051017
  2. ADVAIR DISKUS 100/50 [Concomitant]
  3. NASONEX [Concomitant]
  4. LIPITOR [Concomitant]

REACTIONS (3)
  - ABDOMINAL PAIN [None]
  - ANAPHYLACTIC REACTION [None]
  - DIARRHOEA [None]
